FAERS Safety Report 16075227 (Version 3)
Quarter: 2019Q2

REPORT INFORMATION
  Report Type: Report from Study
  Country: KR (occurrence: KR)
  Receive Date: 20190315
  Receipt Date: 20190424
  Transmission Date: 20190711
  Serious: No
  Sender: FDA-Public Use
  Company Number: KR-ROCHE-2282882

PATIENT
  Age: 54 Year
  Sex: Male
  Weight: 90 kg

DRUGS (2)
  1. COBIMETINIB. [Suspect]
     Active Substance: COBIMETINIB
     Indication: SALIVARY GLAND CANCER
     Dosage: DATE OF MOST RECENT DOSE PRIOR TO ONSET OF THE EVENT:
     Route: 048
     Dates: start: 20180226, end: 20190305
  2. HM 95573 [Suspect]
     Active Substance: INVESTIGATIONAL PRODUCT
     Indication: SALIVARY GLAND CANCER
     Dosage: DATE OF MOST RECENT DOSE PRIOR TO ONSET OF THE EVENT: 02/MAR/2019?DATE OF MOST RECENT DOSE: 12/MAR/2
     Route: 048
     Dates: start: 20180226, end: 20190305

REACTIONS (1)
  - Chorioretinopathy [Recovered/Resolved]

NARRATIVE: CASE EVENT DATE: 20190302
